FAERS Safety Report 16413643 (Version 1)
Quarter: 2019Q2

REPORT INFORMATION
  Report Type: Spontaneous
  Country: US (occurrence: US)
  Receive Date: 20190611
  Receipt Date: 20190611
  Transmission Date: 20190711
  Serious: Yes (Other)
  Sender: FDA-Public Use
  Company Number: US-DRREDDYS-USA/USA/19/0110838

PATIENT

DRUGS (2)
  1. NITROGLYCERIN. [Suspect]
     Active Substance: NITROGLYCERIN
     Indication: WOLFF-PARKINSON-WHITE SYNDROME
     Route: 060
  2. ATENOLOL. [Suspect]
     Active Substance: ATENOLOL
     Indication: WOLFF-PARKINSON-WHITE SYNDROME
     Route: 048

REACTIONS (2)
  - Product quality issue [Unknown]
  - Drug ineffective [Unknown]
